FAERS Safety Report 7042732-5 (Version None)
Quarter: 2010Q4

REPORT INFORMATION
  Report Type: 
  Country: None (occurrence: None)
  Receive Date: 20101013
  Receipt Date: 20100325
  Transmission Date: 20110411
  Serious: No
  Sender: FDA-Public Use
  Company Number: US-ASTRAZENECA-2010SE13317

PATIENT
  Age: 70 Year
  Sex: Male
  Weight: 124.7 kg

DRUGS (4)
  1. SYMBICORT [Suspect]
     Route: 055
  2. LIPITOR [Concomitant]
  3. FLUID PILL [Concomitant]
  4. PROSTATE PILL [Concomitant]

REACTIONS (2)
  - ALANINE AMINOTRANSFERASE INCREASED [None]
  - ASPARTATE AMINOTRANSFERASE INCREASED [None]
